FAERS Safety Report 5212763-6 (Version None)
Quarter: 2007Q1

REPORT INFORMATION
  Report Type: 
  Country: None (occurrence: None)
  Receive Date: 20070118
  Receipt Date: 20070108
  Transmission Date: 20070707
  Serious: Yes (Death, Life-Threatening)
  Sender: FDA-Public Use
  Company Number: FR-ABBOTT-07P-056-0355215-00

PATIENT
  Sex: Male

DRUGS (18)
  1. NORVIR [Suspect]
     Indication: HIV INFECTION
     Route: 048
     Dates: start: 20061116, end: 20061128
  2. NORVIR [Suspect]
     Dates: start: 20061202
  3. FLUCONAZOLE [Suspect]
     Indication: HIV INFECTION
     Route: 048
     Dates: start: 20061201, end: 20061211
  4. LAMIVUDINE [Suspect]
     Indication: HIV INFECTION
     Route: 048
     Dates: start: 20061116, end: 20061128
  5. LAMIVUDINE [Suspect]
     Dates: start: 20061202
  6. ATAZANAVIR [Suspect]
     Indication: HIV INFECTION
     Route: 048
     Dates: start: 20061116, end: 20061128
  7. ATAZANAVIR [Suspect]
     Dates: start: 20061202
  8. ABACAVIR [Suspect]
     Indication: HIV INFECTION
     Route: 048
     Dates: start: 20061116, end: 20061128
  9. ABACAVIR [Suspect]
     Dates: start: 20061202
  10. MOXIFLOXACINE [Suspect]
     Indication: ANTIBIOTIC PROPHYLAXIS
     Route: 048
     Dates: start: 20061128, end: 20061211
  11. CLARITHROMYCIN [Concomitant]
     Indication: ANTIBIOTIC PROPHYLAXIS
     Dates: start: 20061010
  12. ETHAMBUTOL HCL [Concomitant]
     Indication: ANTIBIOTIC PROPHYLAXIS
     Dates: start: 20061010
  13. VALGANCICLOVIR HCL [Concomitant]
     Indication: CYTOMEGALOVIRUS INFECTION
     Dates: start: 20061128
  14. BACTRIM [Concomitant]
     Indication: DRUG USE FOR UNKNOWN INDICATION
     Dates: start: 20061201, end: 20061204
  15. BACTRIM [Concomitant]
  16. VENLAFAXINE HCL [Concomitant]
     Indication: DRUG USE FOR UNKNOWN INDICATION
     Dates: start: 20061129, end: 20061204
  17. PRAZEPAM [Concomitant]
     Indication: DRUG USE FOR UNKNOWN INDICATION
     Dates: start: 20061129, end: 20061204
  18. UNSPECIFIED ANTIDEPRESSANT [Concomitant]
     Indication: DRUG USE FOR UNKNOWN INDICATION

REACTIONS (10)
  - AGRANULOCYTOSIS [None]
  - CONDITION AGGRAVATED [None]
  - HAEMOGLOBIN DECREASED [None]
  - IMMUNODEFICIENCY [None]
  - INFECTION [None]
  - LEUKOPENIA [None]
  - NEUTROPENIA [None]
  - PANCYTOPENIA [None]
  - PLATELET COUNT DECREASED [None]
  - WEIGHT DECREASED [None]
